FAERS Safety Report 9414778 (Version 1)
Quarter: 2013Q3

REPORT INFORMATION
  Report Type: Report from Study
  Country: AR (occurrence: AR)
  Receive Date: 20130723
  Receipt Date: 20130723
  Transmission Date: 20140515
  Serious: Yes (Hospitalization, Other)
  Sender: FDA-Public Use
  Company Number: PHHY2013AR077744

PATIENT
  Sex: Male

DRUGS (2)
  1. DIOVAN [Suspect]
     Indication: HYPERTENSION
     Dosage: 80 MG, DAILY
     Route: 048
  2. DIOVAN [Suspect]
     Dosage: 160 MG, UNK
     Dates: start: 20130718

REACTIONS (2)
  - Cushing^s syndrome [Unknown]
  - Vasculitis [Unknown]
